FAERS Safety Report 7594499-X (Version None)
Quarter: 2011Q3

REPORT INFORMATION
  Report Type: 
  Country: None (occurrence: None)
  Receive Date: 20110707
  Receipt Date: 20110627
  Transmission Date: 20111222
  Serious: Yes (Other)
  Sender: FDA-Public Use
  Company Number: US-BAYER-200940162NA

PATIENT
  Age: 52 Year
  Sex: Male
  Weight: 102 kg

DRUGS (14)
  1. RED BLOOD CELLS [Concomitant]
     Dosage: 1 UNIT
     Route: 042
     Dates: start: 20010816
  2. REGULAR INSULIN [Concomitant]
     Dosage: 35 UNITS
     Route: 042
     Dates: start: 20010816
  3. LASIX [Concomitant]
     Dosage: 60 MGS TWICE DAILY
     Route: 048
  4. REGULAR INSULIN [Concomitant]
     Dosage: 16 UNITS IN THE MORNING AND 10 UNITS IN THE EVENING
     Route: 058
  5. ACETYLSALICYLIC ACID SRT [Concomitant]
     Dosage: 81 MG DAILY
     Route: 048
  6. LISINOPRIL [Concomitant]
     Dosage: 20 MG DAILY
     Route: 048
  7. NAFCILLIN [Concomitant]
     Dosage: 1 GM
     Dates: start: 20010816
  8. HEPARIN [Concomitant]
     Dosage: 1000 UNITS IN BLOOD BATH, 3000 UNITS, 40000 UNITS IV AND 10000 UNITS IN PUMP
     Route: 042
     Dates: start: 20010816
  9. ANCEF [Concomitant]
     Dosage: 2 GRAMS
     Route: 042
     Dates: start: 20010816
  10. TRASYLOL [Suspect]
     Indication: CORONARY ARTERY BYPASS
     Dosage: 200 CC PRIME, 200 BOLUS THEN 50 ML PER HOUR
     Route: 042
     Dates: start: 20010816, end: 20010816
  11. DIGOXIN [Concomitant]
     Dosage: 0.25 MG DAILY
     Route: 048
  12. ZOCOR [Concomitant]
  13. PLATELETS [Concomitant]
     Dosage: 10 UNITS
     Route: 042
  14. HYTRIN [Concomitant]
     Dosage: 10 MG AT HOUR OF SLEEP
     Route: 048

REACTIONS (11)
  - RENAL IMPAIRMENT [None]
  - UNEVALUABLE EVENT [None]
  - RENAL FAILURE [None]
  - RENAL INJURY [None]
  - STRESS [None]
  - ANXIETY [None]
  - FEAR [None]
  - INJURY [None]
  - ANHEDONIA [None]
  - EMOTIONAL DISTRESS [None]
  - PAIN [None]
